FAERS Safety Report 9308020 (Version 1)
Quarter: 2013Q2

REPORT INFORMATION
  Report Type: Spontaneous
  Country: IT (occurrence: IT)
  Receive Date: 20130524
  Receipt Date: 20130524
  Transmission Date: 20140414
  Serious: Yes (Other)
  Sender: FDA-Public Use
  Company Number: IT-SANOFI-AVENTIS-2013SA049625

PATIENT
  Age: 71 Year
  Sex: Female

DRUGS (3)
  1. LASIX [Suspect]
     Indication: HYPERTENSION
     Route: 048
     Dates: start: 20130426, end: 20130426
  2. CARDURA [Suspect]
     Indication: HYPERTENSION
     Route: 048
     Dates: start: 20130426, end: 20130426
  3. TRIATEC [Concomitant]

REACTIONS (4)
  - Pallor [Recovered/Resolved]
  - Cold sweat [Recovered/Resolved]
  - Hypotension [Recovered/Resolved]
  - Paraesthesia [Recovered/Resolved]
